FAERS Safety Report 9125556 (Version 2)
Quarter: 2013Q1

REPORT INFORMATION
  Report Type: Spontaneous
  Country: US (occurrence: US)
  Receive Date: 20130121
  Receipt Date: 20130328
  Transmission Date: 20140127
  Serious: Yes (Other)
  Sender: FDA-Public Use
  Company Number: US-GLAXOSMITHKLINE-A1008218A

PATIENT
  Age: 70 Year
  Sex: Female

DRUGS (11)
  1. ADVAIR [Suspect]
     Indication: CHRONIC OBSTRUCTIVE PULMONARY DISEASE
     Dosage: 1PUFF PER DAY
     Route: 055
     Dates: start: 20130109
  2. ALBUTEROL [Suspect]
     Indication: DYSPNOEA
     Dosage: 2PUFF VARIABLE DOSE
     Route: 055
  3. ALBUTEROL [Concomitant]
  4. NORVASC [Concomitant]
  5. METOPROLOL [Concomitant]
  6. POTASSIUM SUPPLEMENT [Concomitant]
  7. BUMEX [Concomitant]
  8. PLAVIX [Concomitant]
  9. BABY ASPIRIN [Concomitant]
  10. LISINOPRIL [Concomitant]
  11. LIPITOR [Concomitant]

REACTIONS (7)
  - Choking [Recovered/Resolved]
  - Cough [Recovered/Resolved]
  - Throat irritation [Recovered/Resolved]
  - Palpitations [Recovered/Resolved]
  - Increased upper airway secretion [Recovered/Resolved]
  - Heart rate increased [Unknown]
  - Drug ineffective [Unknown]
